FAERS Safety Report 7233876-3 (Version None)
Quarter: 2011Q1

REPORT INFORMATION
  Report Type: 
  Country: None (occurrence: None)
  Receive Date: 20110119
  Receipt Date: 20100331
  Transmission Date: 20110831
  Serious: Yes (Other)
  Sender: FDA-Public Use
  Company Number: US-TEVA-224680USA

PATIENT
  Sex: Female

DRUGS (5)
  1. COPAXONE [Suspect]
     Indication: MULTIPLE SCLEROSIS
     Route: 058
  2. ESTRADIOL [Concomitant]
  3. MULTIVITAMIN [Concomitant]
  4. LISINOPRIL [Concomitant]
  5. HERBALIFE PRODUCTS [Concomitant]

REACTIONS (3)
  - TREMOR [None]
  - CONVULSION [None]
  - CHEST DISCOMFORT [None]
